FAERS Safety Report 26081990 (Version 1)
Quarter: 2025Q4

REPORT INFORMATION
  Report Type: Spontaneous
  Country: US (occurrence: None)
  Receive Date: 20251121
  Receipt Date: 20251121
  Transmission Date: 20260118
  Serious: Yes (Other)
  Sender: FDA-CTU
  Company Number: None

PATIENT
  Age: 22 Year
  Sex: Male
  Weight: 87.75 kg

DRUGS (1)
  1. HARLIKU [Suspect]
     Active Substance: NITISINONE
     Indication: Alkaptonuria
     Dosage: FREQUENCY : DAILY;?
     Route: 048
     Dates: start: 20251020

REACTIONS (2)
  - Vision blurred [None]
  - Therapy interrupted [None]

NARRATIVE: CASE EVENT DATE: 20251117
